FAERS Safety Report 14078579 (Version 1)
Quarter: 2017Q4

REPORT INFORMATION
  Report Type: Spontaneous
  Country: US (occurrence: None)
  Receive Date: 20171012
  Receipt Date: 20171012
  Transmission Date: 20180321
  Serious: Yes (Other)
  Sender: FDA-Public Use
  Company Number: None

PATIENT
  Age: 30 Year
  Sex: Female
  Weight: 79.38 kg

DRUGS (1)
  1. MIRENA [Suspect]
     Active Substance: LEVONORGESTREL

REACTIONS (7)
  - Muscle spasms [None]
  - Procedural haemorrhage [None]
  - Pain [None]
  - Vaginal haemorrhage [None]
  - Embedded device [None]
  - Uterine perforation [None]
  - Uterine rupture [None]

NARRATIVE: CASE EVENT DATE: 20171009
